FAERS Safety Report 19427389 (Version 2)
Quarter: 2021Q3

REPORT INFORMATION
  Report Type: Spontaneous
  Country: BR (occurrence: BR)
  Receive Date: 20210616
  Receipt Date: 20210818
  Transmission Date: 20211014
  Serious: Yes (Death, Other)
  Sender: FDA-Public Use
  Company Number: BR-ROCHE-2850379

PATIENT
  Age: 74 Year
  Sex: Male
  Weight: 32 kg

DRUGS (1)
  1. RIVOTRIL [Suspect]
     Active Substance: CLONAZEPAM
     Indication: STRESS
     Route: 065

REACTIONS (6)
  - Fall [Unknown]
  - Lower limb fracture [Unknown]
  - Wheelchair user [Unknown]
  - Ill-defined disorder [Unknown]
  - Off label use [Unknown]
  - Amyotrophic lateral sclerosis [Fatal]

NARRATIVE: CASE EVENT DATE: 2010
